FAERS Safety Report 24076809 (Version 22)
Quarter: 2024Q4

REPORT INFORMATION
  Report Type: Report from Study
  Country: CA (occurrence: CA)
  Receive Date: 20240711
  Receipt Date: 20241220
  Transmission Date: 20250115
  Serious: Yes (Life-Threatening, Hospitalization)
  Sender: ROCHE
  Company Number: CA-002147023-NVSC2024CA127471

PATIENT
  Age: 41 Year
  Sex: Female
  Weight: 84 kg

DRUGS (20)
  1. XOLAIR [Suspect]
     Active Substance: OMALIZUMAB
     Indication: Chronic spontaneous urticaria
     Dosage: 300 MG, BIW
     Route: 050
     Dates: start: 20200820
  2. XOLAIR [Suspect]
     Active Substance: OMALIZUMAB
     Dosage: 300 MG, BIW
     Route: 050
     Dates: start: 20240614
  3. XOLAIR [Suspect]
     Active Substance: OMALIZUMAB
     Route: 050
     Dates: start: 20240712
  4. XOLAIR [Suspect]
     Active Substance: OMALIZUMAB
     Dosage: 300 MG, BIW
     Route: 050
  5. XOLAIR [Suspect]
     Active Substance: OMALIZUMAB
     Dosage: UNK, BIW (SUPPLEMENTAL DOSE)
     Route: 058
     Dates: start: 20240531
  6. XOLAIR [Suspect]
     Active Substance: OMALIZUMAB
     Route: 058
  7. XOLAIR [Suspect]
     Active Substance: OMALIZUMAB
     Route: 058
     Dates: start: 20240809
  8. XOLAIR [Suspect]
     Active Substance: OMALIZUMAB
     Route: 058
     Dates: start: 20241007
  9. XOLAIR [Suspect]
     Active Substance: OMALIZUMAB
     Route: 065
     Dates: start: 20241018
  10. XOLAIR [Suspect]
     Active Substance: OMALIZUMAB
     Route: 058
  11. XOLAIR [Suspect]
     Active Substance: OMALIZUMAB
     Route: 065
  12. SODIUM CHLORIDE [Concomitant]
     Active Substance: SODIUM CHLORIDE
     Indication: Product used for unknown indication
     Dosage: 500 CC
     Route: 042
     Dates: start: 20241007
  13. SODIUM CHLORIDE [Concomitant]
     Active Substance: SODIUM CHLORIDE
     Dosage: 250 CC
     Route: 042
     Dates: start: 20241007
  14. SODIUM CHLORIDE [Concomitant]
     Active Substance: SODIUM CHLORIDE
     Dosage: UNK
     Route: 065
  15. SODIUM CHLORIDE [Concomitant]
     Active Substance: SODIUM CHLORIDE
     Dosage: 100CC, QH (INFUSION)
     Route: 042
  16. SODIUM CHLORIDE [Concomitant]
     Active Substance: SODIUM CHLORIDE
     Dosage: 500 CC BOLUS
     Route: 065
  17. SODIUM CHLORIDE [Concomitant]
     Active Substance: SODIUM CHLORIDE
     Dosage: 500CC, BOLUS
     Route: 065
  18. SODIUM CHLORIDE [Concomitant]
     Active Substance: SODIUM CHLORIDE
     Dosage: 500CC, BOLUS
     Route: 065
  19. SODIUM CHLORIDE [Concomitant]
     Active Substance: SODIUM CHLORIDE
     Dosage: 500CC, BOLUS
     Route: 065
  20. COSENTYX [Concomitant]
     Active Substance: SECUKINUMAB
     Dates: start: 20241018

REACTIONS (32)
  - Headache [Unknown]
  - Brain fog [Unknown]
  - Illness [Unknown]
  - Insomnia [Unknown]
  - Fatigue [Unknown]
  - Sleep deficit [Unknown]
  - Anaphylactic reaction [Unknown]
  - Dysphonia [Unknown]
  - Rash [Unknown]
  - Dizziness [Unknown]
  - Flushing [Recovering/Resolving]
  - Pruritus [Recovering/Resolving]
  - Anxiety [Unknown]
  - Dysphagia [Unknown]
  - Obstructive airways disorder [Not Recovered/Not Resolved]
  - Rash erythematous [Unknown]
  - Feeling abnormal [Unknown]
  - Blood pressure increased [Unknown]
  - Heart rate increased [Unknown]
  - Abdominal discomfort [Recovering/Resolving]
  - Diarrhoea [Recovering/Resolving]
  - Erythema [Recovering/Resolving]
  - Adverse food reaction [Unknown]
  - Therapeutic response shortened [Unknown]
  - Chronic spontaneous urticaria [Unknown]
  - Condition aggravated [Unknown]
  - Blood immunoglobulin E abnormal [Unknown]
  - Vomiting [Unknown]
  - Urticaria [Recovering/Resolving]
  - Asthma [Unknown]
  - Dysphagia [Unknown]
  - Stress [Unknown]

NARRATIVE: CASE EVENT DATE: 20240614
